FAERS Safety Report 17841622 (Version 1)
Quarter: 2020Q2

REPORT INFORMATION
  Report Type: Spontaneous
  Country: US (occurrence: US)
  Receive Date: 20200529
  Receipt Date: 20200529
  Transmission Date: 20200714
  Serious: Yes (Life-Threatening, Other)
  Sender: FDA-Public Use
  Company Number: US-PFIZER INC-2020211162

PATIENT
  Age: 36 Year
  Sex: Female
  Weight: 49.9 kg

DRUGS (1)
  1. CHANTIX [Suspect]
     Active Substance: VARENICLINE TARTRATE
     Indication: SMOKING CESSATION THERAPY
     Dosage: 0.5 MG, ONCE DAILY
     Route: 048
     Dates: start: 202004, end: 202005

REACTIONS (8)
  - Weight decreased [Unknown]
  - Suicide attempt [Unknown]
  - Violence-related symptom [Unknown]
  - Irritability [Unknown]
  - Agitation [Unknown]
  - Personality change [Unknown]
  - Intentional self-injury [Unknown]
  - Amnesia [Not Recovered/Not Resolved]
